FAERS Safety Report 20179846 (Version 1)
Quarter: 2021Q4

REPORT INFORMATION
  Report Type: Spontaneous
  Country: US (occurrence: US)
  Receive Date: 20211214
  Receipt Date: 20211214
  Transmission Date: 20220303
  Serious: No
  Sender: FDA-Public Use
  Company Number: US-ALKEM LABORATORIES LIMITED-US-ALKEM-2021-01665

PATIENT

DRUGS (5)
  1. ISONIAZID [Suspect]
     Active Substance: ISONIAZID
     Indication: Tuberculosis
     Dosage: 300 MILLIGRAM, QD
     Route: 064
  2. ISONIAZID [Suspect]
     Active Substance: ISONIAZID
     Dosage: 300 MILLIGRAM, QD
     Route: 063
  3. RIFAMPIN [Suspect]
     Active Substance: RIFAMPIN
     Indication: Tuberculosis
     Dosage: 450 MILLIGRAM, QD
     Route: 064
  4. RIFAMPIN [Suspect]
     Active Substance: RIFAMPIN
     Dosage: 450 MILLIGRAM, QD
     Route: 063
  5. ETHAMBUTOL [Suspect]
     Active Substance: ETHAMBUTOL HYDROCHLORIDE
     Indication: Tuberculosis
     Dosage: 1200 MILLIGRAM, QD
     Route: 064

REACTIONS (3)
  - Hepatic enzyme increased [Unknown]
  - Foetal exposure during pregnancy [Unknown]
  - Exposure via breast milk [Unknown]
